FAERS Safety Report 6133491-9 (Version None)
Quarter: 2009Q1

REPORT INFORMATION
  Report Type: 
  Country: None (occurrence: None)
  Receive Date: 20090324
  Receipt Date: 20090324
  Transmission Date: 20090719
  Serious: Yes (Hospitalization)
  Sender: FDA-Public Use
  Company Number: None

PATIENT
  Age: 81 Year
  Sex: Male

DRUGS (2)
  1. ATENOLOL [Suspect]
     Indication: ATRIAL FIBRILLATION
     Dates: start: 20080307, end: 20090305
  2. ATENOLOL [Suspect]
     Indication: HYPERTENSION
     Dates: start: 20080307, end: 20090305

REACTIONS (2)
  - BRADYCARDIA [None]
  - SYNCOPE [None]
